FAERS Safety Report 9032580 (Version 1)
Quarter: 2013Q1

REPORT INFORMATION
  Report Type: Spontaneous
  Country: US (occurrence: US)
  Receive Date: 20130122
  Receipt Date: 20130122
  Transmission Date: 20140127
  Serious: No
  Sender: FDA-Public Use
  Company Number: US-PFIZER INC-2013024018

PATIENT
  Sex: Female

DRUGS (2)
  1. ADVIL COLD AND SINUS [Suspect]
     Indication: EAR DISORDER
     Dosage: UNK
  2. ADVIL CONGESTION RELIEF [Suspect]
     Indication: EAR DISORDER
     Dosage: UNK

REACTIONS (1)
  - Drug ineffective [Unknown]
